APPROVED DRUG PRODUCT: DOCETAXEL
Active Ingredient: DOCETAXEL
Strength: 160MG/8ML (20MG/ML)
Dosage Form/Route: INJECTABLE;INJECTION
Application: N022534 | Product #005
Applicant: SUN PHARMACEUTICAL INDUSTRIES LTD
Approved: Jan 8, 2019 | RLD: No | RS: No | Type: DISCN